FAERS Safety Report 9238577 (Version 1)
Quarter: 2013Q2

REPORT INFORMATION
  Report Type: Not Available
  Country: CN (occurrence: CN)
  Receive Date: 20130418
  Receipt Date: 20130418
  Transmission Date: 20140414
  Serious: Yes (Other)
  Sender: FDA-Public Use
  Company Number: CN-ASTELLAS-2013JP005014

PATIENT
  Sex: Male
  Weight: 90 kg

DRUGS (1)
  1. TACROLIMUS [Suspect]
     Indication: LIVER TRANSPLANT
     Dosage: 2 MG, UID/QD
     Route: 048
     Dates: start: 20090612, end: 20121010

REACTIONS (3)
  - Liver disorder [Not Recovered/Not Resolved]
  - Immunosuppressant drug level decreased [Not Recovered/Not Resolved]
  - Coagulation time prolonged [Not Recovered/Not Resolved]
